APPROVED DRUG PRODUCT: AMIKACIN SULFATE
Active Ingredient: AMIKACIN SULFATE
Strength: EQ 250MG BASE/ML
Dosage Form/Route: INJECTABLE;INJECTION
Application: A063275 | Product #001
Applicant: HIKMA PHARMACEUTICALS USA INC
Approved: May 18, 1992 | RLD: No | RS: No | Type: DISCN